FAERS Safety Report 10558122 (Version 1)
Quarter: 2014Q4

REPORT INFORMATION
  Report Type: Spontaneous
  Country: NL (occurrence: NL)
  Receive Date: 20141031
  Receipt Date: 20141031
  Transmission Date: 20150529
  Serious: Yes (Other)
  Sender: FDA-Public Use
  Company Number: NL-TEVA-517554ISR

PATIENT
  Age: 51 Year
  Sex: Female
  Weight: 56 kg

DRUGS (6)
  1. FYTOMENADION DRANK 10MG/ML [Concomitant]
     Dosage: 2 ML DAILY; TWICE DAILY ONE ML
     Route: 048
  2. VENLAFAXINE FOCUS CAPSULE MVA  75MG [Concomitant]
     Dosage: 75 MILLIGRAM DAILY; ONCE DAILY ONE PIECE, PROLONGED-RELEASE CAPSULE
     Route: 048
  3. CAD CITROEN BRUISGRANULAAT 500MG/440IE IN SACHET [Concomitant]
     Dosage: 2 DOSAGE FORMS DAILY; TWICE DAILY ONE PIECE
     Route: 048
  4. TAMOXIFEN TABLET 20MG [Suspect]
     Active Substance: TAMOXIFEN
     Indication: BREAST CANCER
     Dosage: 20 MILLIGRAM DAILY; ONCE DAILY ONE PIECE
     Route: 048
     Dates: start: 20120202, end: 20140827
  5. VENLAFAXINE FOCUS CAPSULE MVA  37,5MG [Concomitant]
     Dosage: 37.5 MILLIGRAM DAILY; ONCE DAILY ONE PIECE, PROLONGED-RELEASE CAPSULE
     Route: 048
  6. OMEPRAZOL TEVA CAPSULE MSR 40MG [Concomitant]
     Dosage: 80 MILLIGRAM DAILY; TWICE DAILY ONE PIECE, GASTRO-RESISTANT CAPSULE
     Route: 048

REACTIONS (1)
  - Keratorhexis [Recovered/Resolved]

NARRATIVE: CASE EVENT DATE: 20140715
